FAERS Safety Report 17125851 (Version 1)
Quarter: 2019Q4

REPORT INFORMATION
  Report Type: Report from Study
  Country: None (occurrence: US)
  Receive Date: 20191208
  Receipt Date: 20191208
  Transmission Date: 20200122
  Serious: Yes (Hospitalization)
  Sender: FDA-Public Use
  Company Number: US-ABBVIE-19K-163-2912386-00

PATIENT
  Age: 58 Year
  Sex: Female

DRUGS (3)
  1. HUMIRA [Suspect]
     Active Substance: ADALIMUMAB
     Indication: RHEUMATOID ARTHRITIS
     Route: 058
  2. HUMIRA [Suspect]
     Active Substance: ADALIMUMAB
     Indication: COLITIS ULCERATIVE
  3. HUMIRA [Suspect]
     Active Substance: ADALIMUMAB
     Indication: CROHN^S DISEASE

REACTIONS (16)
  - Irritable bowel syndrome [Unknown]
  - Viral infection [Unknown]
  - Vomiting [Unknown]
  - Endoscopy abnormal [Unknown]
  - Pain [Unknown]
  - Joint instability [Unknown]
  - Gastrointestinal disorder [Not Recovered/Not Resolved]
  - Adverse drug reaction [Unknown]
  - Fatigue [Unknown]
  - Fall [Unknown]
  - Fall [Unknown]
  - Pyrexia [Recovered/Resolved]
  - Nausea [Unknown]
  - Cough [Unknown]
  - Dehydration [Unknown]
  - Contusion [Unknown]

NARRATIVE: CASE EVENT DATE: 2019
